FAERS Safety Report 18930624 (Version 1)
Quarter: 2021Q1

REPORT INFORMATION
  Report Type: Not Available
  Country: US (occurrence: US)
  Receive Date: 20210224
  Receipt Date: 20210224
  Transmission Date: 20210420
  Serious: No
  Sender: FDA-Public Use
  Company Number: US-NEUROCRINE BIOSCIENCES INC.-2021NBI00687

PATIENT
  Age: 31 Year
  Sex: Male

DRUGS (2)
  1. INGREZZA [Suspect]
     Active Substance: VALBENAZINE
     Route: 048
     Dates: start: 20201212
  2. INGREZZA [Suspect]
     Active Substance: VALBENAZINE
     Indication: TARDIVE DYSKINESIA
     Route: 048
     Dates: start: 20201204, end: 20201211

REACTIONS (5)
  - Cystitis [Recovering/Resolving]
  - Tremor [Unknown]
  - Muscle tightness [Unknown]
  - Drooling [Unknown]
  - Bradykinesia [Unknown]
